FAERS Safety Report 7827109-4 (Version None)
Quarter: 2011Q4

REPORT INFORMATION
  Report Type: 
  Country: None (occurrence: None)
  Receive Date: 20111019
  Receipt Date: 20111019
  Transmission Date: 20120403
  Serious: No
  Sender: FDA-Public Use
  Company Number: None

PATIENT
  Age: 79 Year
  Sex: Female
  Weight: 65.318 kg

DRUGS (1)
  1. TRIAMCINOLONE ACETONIDE [Suspect]
     Indication: ARTHROPOD STING
     Dosage: 0.1% 4X RIGHT 4TH FINGER
     Dates: start: 20110930

REACTIONS (3)
  - PAIN [None]
  - BURNING SENSATION [None]
  - SWELLING [None]
